FAERS Safety Report 16970495 (Version 1)
Quarter: 2019Q4

REPORT INFORMATION
  Report Type: Spontaneous
  Country: US (occurrence: US)
  Receive Date: 20191029
  Receipt Date: 20191029
  Transmission Date: 20200122
  Serious: No
  Sender: FDA-Public Use
  Company Number: US-AMNEAL PHARMACEUTICALS-2019AMN00805

PATIENT
  Sex: Female

DRUGS (6)
  1. GUAIFENESIN. [Suspect]
     Active Substance: GUAIFENESIN
     Dosage: UNK
     Route: 048
  2. GUAIFENESIN. [Suspect]
     Active Substance: GUAIFENESIN
     Indication: PRODUCTIVE COUGH
     Dosage: 1 TABLETS, TWICE (EVERY 12-HOURS)
     Route: 048
     Dates: start: 201906
  3. GUAIFENESIN. [Suspect]
     Active Substance: GUAIFENESIN
     Dosage: UNK
     Route: 048
  4. GUAIFENESIN. [Suspect]
     Active Substance: GUAIFENESIN
     Dosage: UNK
     Route: 048
  5. GUAIFENESIN. [Suspect]
     Active Substance: GUAIFENESIN
     Dosage: UNK
     Route: 048
  6. GUAIFENESIN. [Suspect]
     Active Substance: GUAIFENESIN
     Dosage: UNK
     Route: 048

REACTIONS (2)
  - Drug ineffective [Unknown]
  - Condition aggravated [Unknown]
